FAERS Safety Report 8874692 (Version 1)
Quarter: 2012Q4

REPORT INFORMATION
  Report Type: 
  Country: US (occurrence: US)
  Receive Date: 20121030
  Receipt Date: 20121030
  Transmission Date: 20130627
  Serious: No
  Sender: FDA-Public Use
  Company Number: US-AMGEN-USASP2012039791

PATIENT
  Age: 58 Year
  Sex: Female

DRUGS (2)
  1. ENBREL [Suspect]
     Dosage: 50 mg, qwk
     Route: 058
     Dates: start: 201105, end: 201205
  2. HUMIRA [Concomitant]
     Dosage: UNK

REACTIONS (3)
  - Injection site reaction [Unknown]
  - Injection site rash [Unknown]
  - Injection site pain [Unknown]
